FAERS Safety Report 21154626 (Version 1)
Quarter: 2022Q3

REPORT INFORMATION
  Report Type: Spontaneous
  Country: US (occurrence: US)
  Receive Date: 20220801
  Receipt Date: 20220801
  Transmission Date: 20221026
  Serious: No
  Sender: FDA-Public Use
  Company Number: US-BRISTOL-MYERS SQUIBB COMPANY-2022-082342

PATIENT
  Age: 65 Year
  Sex: Female

DRUGS (1)
  1. REVLIMID [Suspect]
     Active Substance: LENALIDOMIDE
     Indication: Chronic kidney disease
     Dosage: FREQ: BY MOUTH DAILY FOR 21 DAYS, THEN 7 DAYS OFF
     Route: 048

REACTIONS (2)
  - White blood cell count decreased [Unknown]
  - Intentional product use issue [Unknown]
